FAERS Safety Report 23833279 (Version 1)
Quarter: 2024Q2

REPORT INFORMATION
  Report Type: Spontaneous
  Country: FR (occurrence: FR)
  Receive Date: 20240508
  Receipt Date: 20240508
  Transmission Date: 20240716
  Serious: Yes (Other)
  Sender: FDA-Public Use
  Company Number: None

PATIENT
  Age: 47 Year
  Sex: Female
  Weight: 62.4 kg

DRUGS (2)
  1. NOVATREX (METHOTREXATE) [Suspect]
     Active Substance: METHOTREXATE SODIUM
     Indication: Psoriasis
     Dosage: 15 MG, WEEKLY
     Route: 048
     Dates: start: 20220125, end: 20220705
  2. METHOTREXATE [Suspect]
     Active Substance: METHOTREXATE
     Indication: Psoriasis
     Dosage: 17.5 MG, WEEKLY
     Route: 058
     Dates: start: 20220705, end: 20231218

REACTIONS (2)
  - Hepatic cytolysis [Recovered/Resolved]
  - Hepatic cytolysis [Recovered/Resolved]

NARRATIVE: CASE EVENT DATE: 20220923
